FAERS Safety Report 23237151 (Version 1)
Quarter: 2023Q4

REPORT INFORMATION
  Report Type: Spontaneous
  Country: US (occurrence: US)
  Receive Date: 20231128
  Receipt Date: 20231128
  Transmission Date: 20240110
  Serious: No
  Sender: FDA-Public Use
  Company Number: US-OPELLA-2023OHG016518

PATIENT

DRUGS (1)
  1. DULCOLAX (BISACODYL) [Suspect]
     Active Substance: BISACODYL
     Indication: Constipation

REACTIONS (6)
  - Dizziness [Unknown]
  - Abdominal pain upper [Unknown]
  - Asthenia [Unknown]
  - Cold sweat [Unknown]
  - Nausea [Unknown]
  - Back pain [Unknown]
